FAERS Safety Report 6481922-7 (Version None)
Quarter: 2009Q4

REPORT INFORMATION
  Report Type: 
  Country: None (occurrence: None)
  Receive Date: 20091208
  Receipt Date: 20090330
  Transmission Date: 20100525
  Serious: No
  Sender: FDA-Public Use
  Company Number: US-AMGEN-KDL341011

PATIENT
  Sex: Female

DRUGS (5)
  1. ENBREL [Suspect]
     Indication: PSORIATIC ARTHROPATHY
     Route: 058
     Dates: start: 20070720
  2. ENBREL [Suspect]
     Indication: PSORIASIS
  3. LOVAZA [Concomitant]
  4. VITAMIN TAB [Concomitant]
  5. VIVACTIL [Concomitant]
     Dates: end: 20090101

REACTIONS (1)
  - VOMITING IN PREGNANCY [None]
